FAERS Safety Report 8500836 (Version 5)
Quarter: 2012Q4

REPORT INFORMATION
  Report Type: Report from Study
  Country: JP (occurrence: JP)
  Receive Date: 20120410
  Receipt Date: 20121127
  Transmission Date: 20130627
  Serious: Yes (Other)
  Sender: FDA-Public Use
  Company Number: JP-VERTEX PHARMACEUTICAL INC.-AE-2012-004897

PATIENT
  Age: 61 Year
  Sex: Male

DRUGS (15)
  1. VX-950 (TELAPREVIR) [Suspect]
     Indication: CHRONIC HEPATITIS C
     Dosage: 2250 mg, qd
     Route: 048
     Dates: start: 20120210, end: 20120217
  2. VX-950 (TELAPREVIR) [Suspect]
     Dosage: 1500 mg, qd
     Route: 048
     Dates: start: 20120220, end: 20120223
  3. PEGINTERFERON ALFA-2B [Concomitant]
     Dosage: 1.5 ?g/kg, UNK
     Route: 058
     Dates: start: 20120210
  4. RIBAVIRIN [Concomitant]
     Indication: CHRONIC HEPATITIS C
     Dosage: 800 mg, qd
     Route: 048
     Dates: start: 20120210, end: 20120302
  5. RIBAVIRIN [Concomitant]
     Dosage: 600 mg, UNK
     Route: 048
     Dates: start: 20120303, end: 20120309
  6. RIBAVIRIN [Concomitant]
     Dosage: 200 mg, qd
     Route: 048
     Dates: start: 20120323, end: 20120330
  7. RIBAVIRIN [Concomitant]
     Dosage: 400 mg, UNK
     Route: 048
     Dates: start: 20120331
  8. RIBAVIRIN [Concomitant]
     Dosage: 300 mg, qd
     Route: 048
     Dates: start: 20120330, end: 20120412
  9. RIBAVIRIN [Concomitant]
     Dosage: 400 mg, UNK
     Route: 048
     Dates: start: 20120413, end: 20120501
  10. RIBAVIRIN [Concomitant]
     Dosage: 500 mg, UNK
     Route: 048
     Dates: start: 20120502
  11. RIBAVIRIN [Concomitant]
     Dosage: 600 mg, qd
     Route: 048
     Dates: end: 20120518
  12. RIBAVIRIN [Concomitant]
     Dosage: 400 mg, qd
     Route: 048
     Dates: start: 20120519
  13. ALOSITOL [Concomitant]
     Route: 048
     Dates: start: 20120220
  14. TALION [Concomitant]
     Route: 048
     Dates: start: 20120222
  15. URSODEOXYCHOLIC ACID [Concomitant]
     Dosage: 900 mg, qd
     Route: 048

REACTIONS (8)
  - Renal disorder [Recovered/Resolved]
  - Decreased appetite [None]
  - Nausea [None]
  - Blood urea increased [None]
  - Blood creatinine increased [None]
  - Hyperuricaemia [None]
  - Anaemia [None]
  - Drug eruption [None]
